FAERS Safety Report 17037902 (Version 1)
Quarter: 2019Q4

REPORT INFORMATION
  Report Type: Spontaneous
  Country: FR (occurrence: FR)
  Receive Date: 20191115
  Receipt Date: 20191115
  Transmission Date: 20200122
  Serious: Yes (Disabling)
  Sender: FDA-Public Use
  Company Number: FR-ALSI-201900470

PATIENT
  Age: 20 Year
  Sex: Male
  Weight: 116 kg

DRUGS (2)
  1. PARACETAMOL [Concomitant]
     Active Substance: ACETAMINOPHEN
  2. NITROUS OXIDE. [Suspect]
     Active Substance: NITROUS OXIDE
     Indication: PRODUCT USED FOR UNKNOWN INDICATION
     Route: 055
     Dates: end: 20191018

REACTIONS (2)
  - Drug abuse [Not Recovered/Not Resolved]
  - Acute motor-sensory axonal neuropathy [Not Recovered/Not Resolved]
